FAERS Safety Report 8100875-9 (Version None)
Quarter: 2012Q1

REPORT INFORMATION
  Report Type: 
  Country: None (occurrence: None)
  Receive Date: 20120129
  Receipt Date: 20110908
  Transmission Date: 20120608
  Serious: No
  Sender: FDA-Public Use
  Company Number: US-ABBOTT-11P-163-0852935-00

PATIENT
  Age: 44 Year
  Sex: Male

DRUGS (16)
  1. HUMIRA [Suspect]
     Indication: PSORIATIC ARTHROPATHY
     Dates: start: 20110630
  2. METHOTREXATE [Concomitant]
     Indication: PRODUCT USED FOR UNKNOWN INDICATION
  3. SEROQUEL XR [Concomitant]
     Indication: DEPRESSION
  4. WELCHOL [Concomitant]
     Indication: BLOOD CHOLESTEROL INCREASED
  5. GREEN TEA [Concomitant]
     Indication: SUPPLEMENTATION THERAPY
  6. METOPROLOL TARTRATE [Concomitant]
     Indication: HYPERTENSION
  7. FISH OIL [Concomitant]
     Indication: VITAMIN SUPPLEMENTATION
     Dosage: 1-2 TIMES DAILY
  8. DILTIAZEM HCL [Concomitant]
     Indication: HYPERTENSION
  9. ISOSORBIDE DINITRATE [Concomitant]
     Indication: CARDIAC DISORDER
  10. NIASPAN [Concomitant]
     Indication: PRODUCT USED FOR UNKNOWN INDICATION
  11. MISOPROSTOL [Concomitant]
     Indication: EPIGASTRIC DISCOMFORT
  12. NUCYNTA [Concomitant]
     Indication: PAIN
  13. NITROGLYCERIN [Concomitant]
     Indication: ANGINA PECTORIS
  14. KLONOPIN [Concomitant]
     Indication: DEPRESSION
     Dosage: 1MG IN AM, 2 AT NIGHT
  15. PROVENTIL [Concomitant]
     Indication: ASTHMA
     Dosage: 1-2 PUFFS AS NEEDED
  16. SULINDAC [Concomitant]
     Indication: PSORIATIC ARTHROPATHY

REACTIONS (2)
  - NASOPHARYNGITIS [None]
  - OROPHARYNGEAL PAIN [None]
